FAERS Safety Report 21103046 (Version 1)
Quarter: 2022Q3

REPORT INFORMATION
  Report Type: Spontaneous
  Country: SE (occurrence: SE)
  Receive Date: 20220720
  Receipt Date: 20220720
  Transmission Date: 20221026
  Serious: Yes (Disabling)
  Sender: FDA-Public Use
  Company Number: None

PATIENT
  Sex: Female
  Weight: 75 kg

DRUGS (3)
  1. MIRTAZAPINE [Suspect]
     Active Substance: MIRTAZAPINE
     Indication: Burnout syndrome
     Dosage: 30 MILLIGRAMS EVERY OTHER DAY AND 15 MG PER DAY, UNIT DOSE AND STRENGTH  :15MG, FREQUENCY TIME : 1 D
     Route: 065
     Dates: start: 2015
  2. CANDESARTAN [Suspect]
     Active Substance: CANDESARTAN
     Indication: Product used for unknown indication
     Dosage: FREQUENCY TIME : 1 DAY, UNIT DOSE AND STRENGTH :8MG
     Route: 065
     Dates: start: 20200817
  3. VALACYCLOVIR HYDROCHLORIDE [Concomitant]
     Active Substance: VALACYCLOVIR HYDROCHLORIDE
     Indication: Product used for unknown indication
     Dosage: 500 MILLIGRAM DAILY; 500MG 1 PER DAY IN THE EVENING
     Dates: start: 2003

REACTIONS (3)
  - Myalgia [Unknown]
  - Muscle fatigue [Unknown]
  - Muscle spasms [Not Recovered/Not Resolved]

NARRATIVE: CASE EVENT DATE: 20150113
